FAERS Safety Report 10091860 (Version 3)
Quarter: 2015Q3

REPORT INFORMATION
  Report Type: Spontaneous
  Country: US (occurrence: US)
  Receive Date: 20140421
  Receipt Date: 20150813
  Transmission Date: 20151125
  Serious: No
  Sender: FDA-Public Use
  Company Number: US-GILEAD-2012-0064555

PATIENT
  Age: 68 Year
  Sex: Female

DRUGS (1)
  1. LETAIRIS [Suspect]
     Active Substance: AMBRISENTAN
     Indication: COR PULMONALE CHRONIC
     Dosage: 5 MG, QD
     Route: 048
     Dates: start: 20121026

REACTIONS (8)
  - Dyspnoea [Unknown]
  - Feeling hot [Unknown]
  - Paraesthesia [Unknown]
  - Dizziness [Unknown]
  - Hyperhidrosis [Unknown]
  - Hypotension [Unknown]
  - Irregular breathing [Unknown]
  - Middle insomnia [Unknown]
